FAERS Safety Report 24832403 (Version 2)
Quarter: 2025Q1

REPORT INFORMATION
  Report Type: Report from Study
  Country: TH (occurrence: TH)
  Receive Date: 20250110
  Receipt Date: 20250213
  Transmission Date: 20250408
  Serious: Yes (Death, Hospitalization)
  Sender: DAIICHI
  Company Number: TH-DSJP-DS-2024-116692-TH

PATIENT
  Age: 47 Year
  Sex: Female

DRUGS (2)
  1. ENHERTU [Suspect]
     Active Substance: FAM-TRASTUZUMAB DERUXTECAN-NXKI
     Indication: HER2 low breast cancer
     Route: 042
     Dates: start: 20241213
  2. ENHERTU [Suspect]
     Active Substance: FAM-TRASTUZUMAB DERUXTECAN-NXKI
     Route: 042
     Dates: start: 20250102

REACTIONS (10)
  - Death [Fatal]
  - Diarrhoea [Unknown]
  - Dyspnoea [Unknown]
  - Constipation [Unknown]
  - Abdominal distension [Unknown]
  - Abdominal pain [Unknown]
  - Decreased appetite [Unknown]
  - Myalgia [Unknown]
  - Adverse drug reaction [Unknown]
  - Hip fracture [Unknown]

NARRATIVE: CASE EVENT DATE: 20241213
